FAERS Safety Report 8623369-0 (Version None)
Quarter: 2012Q3

REPORT INFORMATION
  Report Type: 
  Country: None (occurrence: None)
  Receive Date: 20120827
  Receipt Date: 20120820
  Transmission Date: 20120928
  Serious: Yes (Other)
  Sender: FDA-Public Use
  Company Number: GB-JNJFOC-20111006028

PATIENT
  Sex: Female

DRUGS (5)
  1. REMICADE [Suspect]
     Indication: CROHN'S DISEASE
     Route: 042
  2. PENTASA [Suspect]
     Indication: PRODUCT USED FOR UNKNOWN INDICATION
     Route: 065
     Dates: start: 20080101
  3. REMICADE [Suspect]
     Dosage: 7.5MG/KG
     Route: 042
     Dates: start: 20080101
  4. REMICADE [Suspect]
     Route: 042
  5. PREDNISOLONE [Suspect]
     Indication: CROHN'S DISEASE
     Route: 065
     Dates: start: 20080101

REACTIONS (3)
  - MATERNAL EXPOSURE DURING PREGNANCY [None]
  - CROHN'S DISEASE [None]
  - PREMATURE LABOUR [None]
